FAERS Safety Report 12187788 (Version 1)
Quarter: 2016Q1

REPORT INFORMATION
  Report Type: Spontaneous
  Country: US (occurrence: US)
  Receive Date: 20160317
  Receipt Date: 20160317
  Transmission Date: 20160526
  Serious: No
  Sender: FDA-Public Use
  Company Number: US-PERRIGO-16US000760

PATIENT
  Age: 65 Year
  Sex: Male
  Weight: 81.63 kg

DRUGS (2)
  1. NICOTINE POLACRILEX [Suspect]
     Active Substance: NICOTINE
     Dosage: 3 LOZENGES AT ONE TIME, SINGLE
     Route: 002
     Dates: start: 20160125, end: 20160125
  2. NICOTINE POLACRILEX [Suspect]
     Active Substance: NICOTINE
     Indication: SMOKING CESSATION THERAPY
     Dosage: 4 MG, 4 TO 5 TIMES DAILY
     Route: 002
     Dates: start: 20160123

REACTIONS (2)
  - Incorrect dose administered [Recovered/Resolved]
  - Drug ineffective [Unknown]

NARRATIVE: CASE EVENT DATE: 20160123
